FAERS Safety Report 4895547-8 (Version None)
Quarter: 2006Q1

REPORT INFORMATION
  Report Type: 
  Country: None (occurrence: None)
  Receive Date: 20060130
  Receipt Date: 20041108
  Transmission Date: 20060701
  Serious: Yes (Disabling)
  Sender: FDA-Public Use
  Company Number: US-ROCHE-385781

PATIENT
  Age: 15 Year
  Sex: Female
  Weight: 68 kg

DRUGS (3)
  1. ACCUTANE [Suspect]
     Indication: ACNE
     Route: 048
     Dates: start: 20000808
  2. ACCUTANE [Suspect]
     Route: 048
     Dates: start: 20001013
  3. ACCUTANE [Suspect]
     Route: 048
     Dates: end: 20010126

REACTIONS (10)
  - BLOOD CHOLESTEROL INCREASED [None]
  - COLITIS [None]
  - COLITIS ULCERATIVE [None]
  - GASTRITIS [None]
  - GASTROINTESTINAL DISORDER [None]
  - INFLAMMATORY BOWEL DISEASE [None]
  - INTESTINAL HAEMORRHAGE [None]
  - MULTI-ORGAN DISORDER [None]
  - RASH [None]
  - RECTAL HAEMORRHAGE [None]
